FAERS Safety Report 9208018 (Version 1)
Quarter: 2013Q2

REPORT INFORMATION
  Report Type: Spontaneous
  Country: US (occurrence: US)
  Receive Date: 20130403
  Receipt Date: 20130403
  Transmission Date: 20140414
  Serious: No
  Sender: FDA-Public Use
  Company Number: US-009507513-1304USA000253

PATIENT
  Sex: Female

DRUGS (2)
  1. ZETIA [Suspect]
     Indication: THYROIDITIS CHRONIC
     Dosage: 10 MG, UNK
     Route: 048
     Dates: start: 201209
  2. SYNTHROID [Concomitant]

REACTIONS (3)
  - Sleep disorder [Not Recovered/Not Resolved]
  - Myalgia [Not Recovered/Not Resolved]
  - Dyspepsia [Not Recovered/Not Resolved]
